FAERS Safety Report 5291431-9 (Version None)
Quarter: 2007Q2

REPORT INFORMATION
  Report Type: 
  Country: None (occurrence: None)
  Receive Date: 20070402
  Receipt Date: 20070322
  Transmission Date: 20071010
  Serious: Yes (Other)
  Sender: FDA-Public Use
  Company Number: GXKR2007GB02747

PATIENT
  Age: 38 Year
  Sex: Male

DRUGS (3)
  1. TRAMADOL HCL [Suspect]
     Indication: BACK PAIN
     Dosage: 50 MG, TID, ORAL
     Route: 048
     Dates: start: 20070222, end: 20070226
  2. IBUPROFEN [Concomitant]
  3. ROBAXIN [Concomitant]

REACTIONS (6)
  - OEDEMA [None]
  - OEDEMA PERIPHERAL [None]
  - POLLAKIURIA [None]
  - RASH MACULAR [None]
  - TERMINAL DRIBBLING [None]
  - URINARY RETENTION [None]
